FAERS Safety Report 19151087 (Version 1)
Quarter: 2021Q2

REPORT INFORMATION
  Report Type: Spontaneous
  Country: CA (occurrence: CA)
  Receive Date: 20210419
  Receipt Date: 20210419
  Transmission Date: 20210717
  Serious: Yes (Hospitalization, Other)
  Sender: FDA-Public Use
  Company Number: CA-TEVA-2021-CA-1901136

PATIENT
  Age: 75 Year
  Sex: Female
  Weight: 70 kg

DRUGS (19)
  1. AMOXICILLIN. [Concomitant]
     Active Substance: AMOXICILLIN
  2. CALCIUM CARBONATE. [Concomitant]
     Active Substance: CALCIUM CARBONATE
  3. ZOPICLONE [Concomitant]
     Active Substance: ZOPICLONE
  4. PREGABALIN. [Suspect]
     Active Substance: PREGABALIN
     Indication: ARTHRALGIA
     Route: 065
  5. DICLOFENAC [Concomitant]
     Active Substance: DICLOFENAC
  6. LATANOPROST. [Concomitant]
     Active Substance: LATANOPROST
  7. ACETAMINOPHEN. [Concomitant]
     Active Substance: ACETAMINOPHEN
  8. GABAPENTIN. [Concomitant]
     Active Substance: GABAPENTIN
  9. IPRATROPIUM [Concomitant]
     Active Substance: IPRATROPIUM
  10. TELMISARTAN. [Concomitant]
     Active Substance: TELMISARTAN
  11. BRINZOLAMIDE TIMOLOL [Suspect]
     Active Substance: BRINZOLAMIDE\TIMOLOL
     Indication: GLAUCOMA
     Route: 065
  12. ATORVASTATIN [Concomitant]
     Active Substance: ATORVASTATIN
  13. ESTRADIOL. [Concomitant]
     Active Substance: ESTRADIOL
  14. IBUPROFEN. [Concomitant]
     Active Substance: IBUPROFEN
  15. VITAMIN B6 [Concomitant]
     Active Substance: PYRIDOXINE HYDROCHLORIDE
  16. NAPROXEN. [Suspect]
     Active Substance: NAPROXEN
     Indication: ARTHRALGIA
     Route: 065
  17. CLONAZEPAM. [Concomitant]
     Active Substance: CLONAZEPAM
  18. MULTIVITAMINE(S) [Concomitant]
     Active Substance: VITAMINS
  19. VITAMIN D3 [Concomitant]
     Active Substance: CHOLECALCIFEROL

REACTIONS (1)
  - Toxic epidermal necrolysis [Recovered/Resolved]
